FAERS Safety Report 16355458 (Version 1)
Quarter: 2019Q2

REPORT INFORMATION
  Report Type: Spontaneous
  Country: GB (occurrence: GB)
  Receive Date: 20190525
  Receipt Date: 20190525
  Transmission Date: 20190711
  Serious: Yes (Hospitalization)
  Sender: FDA-Public Use
  Company Number: GB-TEVA-2019-GB-1053010

PATIENT
  Age: 86 Year
  Sex: Female
  Weight: 61.1 kg

DRUGS (12)
  1. CLARITHROMYCIN. [Concomitant]
     Active Substance: CLARITHROMYCIN
  2. DOXAZOSIN [Concomitant]
     Active Substance: DOXAZOSIN\DOXAZOSIN MESYLATE
  3. SIMVASTATIN. [Concomitant]
     Active Substance: SIMVASTATIN
  4. AMITRIPTYLINE [Concomitant]
     Active Substance: AMITRIPTYLINE
  5. CO-AMOXICLAV [Concomitant]
     Active Substance: AMOXICILLIN\CLAVULANATE POTASSIUM
  6. COCODAMOL [Concomitant]
     Active Substance: ACETAMINOPHEN\CODEINE PHOSPHATE
  7. BISOPROLOL [Concomitant]
     Active Substance: BISOPROLOL
  8. PARACETAMOL [Concomitant]
     Active Substance: ACETAMINOPHEN
  9. PANTOPRAZOLE [Suspect]
     Active Substance: PANTOPRAZOLE
     Route: 065
  10. MORPHINE SULFATE. [Concomitant]
     Active Substance: MORPHINE SULFATE
     Indication: BACK PAIN
  11. LOSARTAN. [Suspect]
     Active Substance: LOSARTAN
     Indication: ESSENTIAL HYPERTENSION
     Route: 048
     Dates: start: 20180801, end: 20190416
  12. ENOXAPARIN [Concomitant]
     Active Substance: ENOXAPARIN

REACTIONS (5)
  - Acute kidney injury [Recovering/Resolving]
  - Disorientation [Unknown]
  - Pneumonia [Unknown]
  - Hyponatraemia [Unknown]
  - Confusional state [Unknown]

NARRATIVE: CASE EVENT DATE: 20190415
